FAERS Safety Report 12599165 (Version 1)
Quarter: 2016Q3

REPORT INFORMATION
  Report Type: Spontaneous
  Country: US (occurrence: US)
  Receive Date: 20160727
  Receipt Date: 20160727
  Transmission Date: 20161109
  Serious: No
  Sender: FDA-Public Use
  Company Number: US-BRISTOL-MYERS SQUIBB COMPANY-BMS-2016-058914

PATIENT
  Age: 62 Year
  Sex: Female

DRUGS (4)
  1. HYDROXYUREA. [Suspect]
     Active Substance: HYDROXYUREA
     Indication: PRODUCT USED FOR UNKNOWN INDICATION
     Route: 065
  2. JAKAFI [Suspect]
     Active Substance: RUXOLITINIB
     Indication: MYELOFIBROSIS
     Dosage: 10 MG, BID
     Route: 048
     Dates: start: 20160205
  3. ASPIRIN                            /00002701/ [Concomitant]
     Active Substance: ASPIRIN
     Indication: PRODUCT USED FOR UNKNOWN INDICATION
     Route: 065
  4. ANAGRELIDE [Concomitant]
     Active Substance: ANAGRELIDE
     Indication: PRODUCT USED FOR UNKNOWN INDICATION
     Route: 065

REACTIONS (12)
  - Somnolence [Unknown]
  - Local swelling [Unknown]
  - Mass [Unknown]
  - Peripheral swelling [Unknown]
  - Dry mouth [Unknown]
  - Anaemia [Unknown]
  - Asthenia [Unknown]
  - Full blood count decreased [Unknown]
  - Nail discolouration [Unknown]
  - Dizziness [Unknown]
  - Dry throat [Unknown]
  - Fatigue [Unknown]

NARRATIVE: CASE EVENT DATE: 20160622
